FAERS Safety Report 10392063 (Version 1)
Quarter: 2014Q3

REPORT INFORMATION
  Report Type: Spontaneous
  Country: BR (occurrence: BR)
  Receive Date: 20140819
  Receipt Date: 20140819
  Transmission Date: 20150326
  Serious: Yes (Hospitalization)
  Sender: FDA-Public Use
  Company Number: BR-ROCHE-1448803

PATIENT
  Age: 49 Year
  Sex: Female
  Weight: 74 kg

DRUGS (3)
  1. DAUNORUBICIN [Concomitant]
     Active Substance: DAUNORUBICIN
     Route: 065
  2. ARACYTIN [Concomitant]
     Active Substance: CYTARABINE
     Route: 065
  3. VESANOID [Suspect]
     Active Substance: TRETINOIN
     Indication: LEUKAEMIA
     Route: 065
     Dates: start: 20140805

REACTIONS (4)
  - Leukocytosis [Unknown]
  - Thrombocytopenia [Unknown]
  - Anaemia [Unknown]
  - Leukaemia [Not Recovered/Not Resolved]
